FAERS Safety Report 15608490 (Version 2)
Quarter: 2018Q4

REPORT INFORMATION
  Report Type: Spontaneous
  Country: US (occurrence: US)
  Receive Date: 20181112
  Receipt Date: 20181211
  Transmission Date: 20190205
  Serious: Yes (Hospitalization, Other)
  Sender: FDA-Public Use
  Company Number: US-OTSUKA-2018_016200

PATIENT

DRUGS (8)
  1. ABILIFY [Suspect]
     Active Substance: ARIPIPRAZOLE
     Indication: SCHIZOPHRENIA
     Dosage: 40 MG, QD
     Route: 065
     Dates: start: 2002, end: 201603
  2. ABILIFY [Suspect]
     Active Substance: ARIPIPRAZOLE
     Indication: MAJOR DEPRESSION
  3. ZOLOFT [Concomitant]
     Active Substance: SERTRALINE HYDROCHLORIDE
     Indication: PRODUCT USED FOR UNKNOWN INDICATION
     Dosage: 50 MG, UNK
     Route: 065
  4. ABILIFY [Suspect]
     Active Substance: ARIPIPRAZOLE
     Indication: PSYCHOTIC DISORDER
  5. ABILIFY [Suspect]
     Active Substance: ARIPIPRAZOLE
     Indication: BIPOLAR DISORDER
     Dosage: UNK
     Route: 065
     Dates: end: 20160820
  6. ABILIFY [Suspect]
     Active Substance: ARIPIPRAZOLE
     Indication: ANXIETY
  7. AMBIEN [Concomitant]
     Active Substance: ZOLPIDEM TARTRATE
     Indication: PRODUCT USED FOR UNKNOWN INDICATION
     Dosage: 10 MG, UNK
     Route: 065
  8. ABILIFY [Suspect]
     Active Substance: ARIPIPRAZOLE
     Indication: PERSONALITY DISORDER

REACTIONS (20)
  - Seizure [Unknown]
  - Suicide attempt [Not Recovered/Not Resolved]
  - Injury [Unknown]
  - Shoplifting [Not Recovered/Not Resolved]
  - Condition aggravated [Unknown]
  - Thinking abnormal [Unknown]
  - Eating disorder [Not Recovered/Not Resolved]
  - Mental disorder [Unknown]
  - Obsessive-compulsive disorder [Not Recovered/Not Resolved]
  - Compulsive hoarding [Not Recovered/Not Resolved]
  - Gambling disorder [Recovered/Resolved]
  - Sexual dysfunction [Not Recovered/Not Resolved]
  - Diabetes mellitus [Unknown]
  - Product use in unapproved indication [Unknown]
  - Theft [Not Recovered/Not Resolved]
  - Compulsive sexual behaviour [Not Recovered/Not Resolved]
  - Compulsive shopping [Recovered/Resolved]
  - Suicidal ideation [Not Recovered/Not Resolved]
  - Hypertension [Unknown]
  - Economic problem [Unknown]

NARRATIVE: CASE EVENT DATE: 2006
